FAERS Safety Report 6643461-X (Version None)
Quarter: 2010Q1

REPORT INFORMATION
  Report Type: 
  Country: None (occurrence: None)
  Receive Date: 20100319
  Receipt Date: 20100311
  Transmission Date: 20100710
  Serious: Yes (Other)
  Sender: FDA-Public Use
  Company Number: US-ABBOTT-10P-163-0624789-00

PATIENT
  Sex: Female
  Weight: 50.848 kg

DRUGS (5)
  1. HUMIRA [Suspect]
     Indication: RHEUMATOID ARTHRITIS
     Dates: start: 20020601, end: 20070101
  2. HUMIRA [Suspect]
     Dates: start: 20070101, end: 20100101
  3. PLAQUENIL [Concomitant]
     Indication: RHEUMATOID ARTHRITIS
  4. NABUMETONE [Concomitant]
     Indication: RHEUMATOID ARTHRITIS
  5. VOLTAREN [Concomitant]
     Indication: RHEUMATOID ARTHRITIS

REACTIONS (7)
  - IRON DEFICIENCY ANAEMIA [None]
  - JOINT SWELLING [None]
  - OSTEOARTHRITIS [None]
  - RETINAL DISORDER [None]
  - SINUSITIS [None]
  - VITREOUS DISORDER [None]
  - VITREOUS FLOATERS [None]
